FAERS Safety Report 13582225 (Version 1)
Quarter: 2017Q2

REPORT INFORMATION
  Report Type: Spontaneous
  Country: SE (occurrence: SE)
  Receive Date: 20170525
  Receipt Date: 20170525
  Transmission Date: 20170830
  Serious: Yes (Life-Threatening)
  Sender: FDA-Public Use
  Company Number: SE-JNJFOC-20170515086

PATIENT
  Age: 43 Year
  Sex: Female

DRUGS (2)
  1. IPREN [Suspect]
     Active Substance: IBUPROFEN
     Indication: INFLUENZA
     Route: 065
     Dates: start: 20170408, end: 20170502
  2. IPREN [Suspect]
     Active Substance: IBUPROFEN
     Route: 065

REACTIONS (3)
  - Pharyngeal oedema [Recovered/Resolved with Sequelae]
  - Dysphonia [Recovered/Resolved with Sequelae]
  - Swollen tongue [Recovered/Resolved with Sequelae]

NARRATIVE: CASE EVENT DATE: 201704
